FAERS Safety Report 9341102 (Version 1)
Quarter: 2013Q2

REPORT INFORMATION
  Report Type: Spontaneous
  Country: US (occurrence: US)
  Receive Date: 20130610
  Receipt Date: 20130610
  Transmission Date: 20140414
  Serious: Yes (Hospitalization)
  Sender: FDA-Public Use
  Company Number: US-B.I. PHARMACEUTICALS,INC./RIDGEFIELD-2013-BI-16136BP

PATIENT
  Age: 48 Year
  Sex: Female
  Weight: 98 kg

DRUGS (9)
  1. MIRAPEX [Suspect]
     Indication: RESTLESS LEGS SYNDROME
     Dosage: 0.5 MG
     Route: 048
     Dates: start: 201211
  2. NEXIUM [Concomitant]
     Indication: GASTROOESOPHAGEAL REFLUX DISEASE
     Dosage: 40 MG
     Route: 048
  3. CYMBALTA [Concomitant]
     Indication: DEPRESSION
     Dosage: 60 MG
     Route: 048
  4. NAPROXYN [Concomitant]
     Indication: PAIN
     Dosage: 1000 MG
     Route: 048
  5. FLEXERIL [Concomitant]
     Indication: MUSCLE SPASMS
     Dosage: 30 MG
     Route: 048
  6. HYDROCHLOROTHIAZIDE [Concomitant]
     Indication: SWELLING
     Dosage: 20 MG
     Route: 048
  7. TRAZODONE [Concomitant]
     Indication: SLEEP DISORDER
     Dosage: 150 MG
     Route: 048
  8. FLUTICASONE [Concomitant]
     Indication: NASAL CONGESTION
     Dosage: FORMULATION: SPRAY STRENGTH: 1 SPRAY; DAILY DOSE: 1 SPRAY
     Route: 045
  9. LIDODERM PATCH [Concomitant]
     Indication: PAIN
     Dosage: 300 MG

REACTIONS (1)
  - Pneumonia streptococcal [Recovered/Resolved]
